FAERS Safety Report 4494149-5 (Version None)
Quarter: 2004Q4

REPORT INFORMATION
  Report Type: 
  Country: None (occurrence: None)
  Receive Date: 20041104
  Receipt Date: 20041104
  Transmission Date: 20050328
  Serious: Yes (Hospitalization)
  Sender: FDA-Public Use
  Company Number: None

PATIENT
  Age: 48 Year
  Sex: Female
  Weight: 68.0396 kg

DRUGS (2)
  1. HUMULIN R [Suspect]
     Indication: DIABETES MELLITUS INSULIN-DEPENDENT
     Dosage: VARIABLE BEFORE MEALS SQ
     Route: 058
     Dates: start: 20000101, end: 20041103
  2. ADVAIR DISKUS 100/50 [Suspect]
     Indication: ASTHMA
     Dosage: 100/50 MGQ 12 HOURS ONOPHARING
     Dates: start: 20041007, end: 20041103

REACTIONS (6)
  - ABNORMAL BEHAVIOUR [None]
  - BLOOD GLUCOSE DECREASED [None]
  - FEELING HOT [None]
  - FLUSHING [None]
  - TREATMENT NONCOMPLIANCE [None]
  - TREMOR [None]
